FAERS Safety Report 8594853 (Version 2)
Quarter: 2012Q4

REPORT INFORMATION
  Report Type: 
  Country: US (occurrence: US)
  Receive Date: 20120604
  Receipt Date: 20121015
  Transmission Date: 20130627
  Serious: Yes (Hospitalization)
  Sender: FDA-Public Use
  Company Number: US-BAYER-2012-053834

PATIENT
  Age: 32 Year
  Sex: Female
  Weight: 69.84 kg

DRUGS (4)
  1. YAZ [Suspect]
     Indication: CONTRACEPTION
     Dosage: UNK
     Dates: start: 2008, end: 2010
  2. ZYRTEC [Concomitant]
     Dosage: 10 mg, UNK
     Dates: start: 20080211
  3. FLEXERIL [Concomitant]
     Dosage: UNK, PRN
  4. VICODIN [Concomitant]
     Dosage: UNK, PRN

REACTIONS (5)
  - Gallbladder non-functioning [None]
  - Cholecystitis chronic [None]
  - Injury [None]
  - Pain [None]
  - Pain [None]
